FAERS Safety Report 10943823 (Version 1)
Quarter: 2015Q1

REPORT INFORMATION
  Report Type: Spontaneous
  Country: US (occurrence: None)
  Receive Date: 20150212
  Receipt Date: 20150212
  Transmission Date: 20150721
  Serious: No
  Sender: FDA-Public Use
  Company Number: TPA2011A08065

PATIENT
  Age: 83 Year
  Sex: Female

DRUGS (2)
  1. COLCRYS [Suspect]
     Active Substance: COLCHICINE
     Indication: GOUTY TOPHUS
     Route: 048
  2. ULORIC [Suspect]
     Active Substance: FEBUXOSTAT
     Indication: GOUTY TOPHUS
     Route: 048

REACTIONS (1)
  - Hepatic enzyme increased [None]
